FAERS Safety Report 13459352 (Version 1)
Quarter: 2017Q2

REPORT INFORMATION
  Report Type: Spontaneous
  Country: US (occurrence: US)
  Receive Date: 20170419
  Receipt Date: 20170419
  Transmission Date: 20170830
  Serious: Yes (Other)
  Sender: FDA-Public Use
  Company Number: US-ALLERGAN-1714959US

PATIENT
  Age: 55 Year
  Sex: Female
  Weight: 59.86 kg

DRUGS (3)
  1. SOMA [Concomitant]
     Active Substance: CARISOPRODOL
     Indication: PAIN
     Dosage: 350 MG, TID
  2. MORPHINE SULFATE. [Concomitant]
     Active Substance: MORPHINE SULFATE
     Indication: PAIN
     Dosage: 15 MG, BID
     Route: 048
     Dates: start: 20160603
  3. BOTOX [Suspect]
     Active Substance: ONABOTULINUMTOXINA
     Indication: MIGRAINE
     Dosage: 155 UNITS, SINGLE
     Route: 030

REACTIONS (7)
  - Joint injury [Unknown]
  - Malaise [Recovered/Resolved]
  - Back injury [Not Recovered/Not Resolved]
  - Drug ineffective [Unknown]
  - Transient ischaemic attack [Unknown]
  - Spinal fracture [Not Recovered/Not Resolved]
  - Osteoporosis [Not Recovered/Not Resolved]

NARRATIVE: CASE EVENT DATE: 20160603
